FAERS Safety Report 8109013 (Version 5)
Quarter: 2013Q3

REPORT INFORMATION
  Report Type: Spontaneous
  Country: US (occurrence: US)
  Receive Date: 20110826
  Receipt Date: 20130828
  Transmission Date: 20140515
  Serious: Yes (Hospitalization)
  Sender: FDA-Public Use
  Company Number: US-GLAXOSMITHKLINE-B0705670A

PATIENT
  Sex: Male
  Weight: 94.5 kg

DRUGS (6)
  1. AVANDIA [Suspect]
     Indication: DIABETES MELLITUS
     Dosage: 4MG PER DAY
     Route: 048
     Dates: start: 200603, end: 20100821
  2. SIMVASTATIN [Concomitant]
  3. METFORMIN [Concomitant]
  4. TRICOR [Concomitant]
  5. LISINOPRIL [Concomitant]
  6. GLIPIZIDE [Concomitant]

REACTIONS (3)
  - Myocardial infarction [Unknown]
  - Coronary artery disease [Unknown]
  - Cerebrovascular accident [Unknown]
